FAERS Safety Report 4311903-0 (Version None)
Quarter: 2004Q1

REPORT INFORMATION
  Report Type: 
  Country: None (occurrence: None)
  Receive Date: 20040305
  Receipt Date: 20040227
  Transmission Date: 20041129
  Serious: Yes (Hospitalization)
  Sender: FDA-Public Use
  Company Number: 200411563US

PATIENT
  Sex: Male
  Weight: 61.9 kg

DRUGS (12)
  1. TAXOTERE [Suspect]
     Indication: NASAL SINUS CANCER
     Route: 042
     Dates: start: 20030930, end: 20030930
  2. TAXOTERE [Suspect]
     Indication: SQUAMOUS CELL CARCINOMA
     Route: 042
     Dates: start: 20030930, end: 20030930
  3. XELODA [Suspect]
     Indication: NASAL SINUS CANCER
     Dates: start: 20030927, end: 20030930
  4. XELODA [Suspect]
     Indication: SQUAMOUS CELL CARCINOMA
     Dates: start: 20030927, end: 20030930
  5. HYTRIN [Concomitant]
  6. VIOXX [Concomitant]
  7. ASPIRIN [Concomitant]
  8. GLUCOSAMINE [Concomitant]
     Dosage: DOSE: AS DIRECTED
  9. MULTI-VITAMINS [Concomitant]
  10. OXYCODONE [Concomitant]
     Dosage: DOSE: 5-10
  11. COMPAZINE [Concomitant]
  12. ATIVAN [Concomitant]

REACTIONS (11)
  - CHILLS [None]
  - CONJUNCTIVITIS [None]
  - COUGH [None]
  - DACRYOSTENOSIS ACQUIRED [None]
  - DYSPNOEA [None]
  - HYPERHIDROSIS [None]
  - HYPONATRAEMIA [None]
  - LUNG INFILTRATION [None]
  - ORAL CANDIDIASIS [None]
  - PNEUMONIA [None]
  - PNEUMONIA ASPIRATION [None]
